FAERS Safety Report 16720803 (Version 1)
Quarter: 2019Q3

REPORT INFORMATION
  Report Type: Spontaneous
  Country: GB (occurrence: GB)
  Receive Date: 20190820
  Receipt Date: 20190820
  Transmission Date: 20191005
  Serious: Yes (Death, Hospitalization)
  Sender: FDA-Public Use
  Company Number: PHHY2019GB191622

PATIENT
  Age: 60 Year
  Sex: Male

DRUGS (3)
  1. CISPLATIN. [Suspect]
     Active Substance: CISPLATIN
     Indication: NASOPHARYNGEAL CANCER
     Dosage: UNK
     Route: 065
  2. FLUOROURACIL. [Suspect]
     Active Substance: FLUOROURACIL
     Indication: NASOPHARYNGEAL CANCER
     Dosage: UNK
     Route: 065
  3. DOCETAXEL. [Suspect]
     Active Substance: DOCETAXEL
     Indication: NASOPHARYNGEAL CANCER
     Dosage: UNK
     Route: 065

REACTIONS (16)
  - Hypophagia [Unknown]
  - Malaise [Unknown]
  - Body temperature increased [Unknown]
  - Hypotension [Unknown]
  - Tachypnoea [Unknown]
  - Vomiting [Unknown]
  - Neutropenic sepsis [Fatal]
  - Malaise [Unknown]
  - Stomatitis [Unknown]
  - Oropharyngeal pain [Unknown]
  - Nausea [Unknown]
  - Hypoxia [Unknown]
  - Oral candidiasis [Unknown]
  - Arrhythmia [Not Recovered/Not Resolved]
  - Tachycardia [Unknown]
  - Productive cough [Unknown]

NARRATIVE: CASE EVENT DATE: 20190412
